FAERS Safety Report 12809352 (Version 4)
Quarter: 2016Q4

REPORT INFORMATION
  Report Type: Report from Study
  Country: MX (occurrence: MX)
  Receive Date: 20161004
  Receipt Date: 20161027
  Transmission Date: 20170207
  Serious: Yes (Other)
  Sender: FDA-Public Use
  Company Number: PHHY2016MX112027

PATIENT
  Age: 36 Year
  Sex: Female
  Weight: 83 kg

DRUGS (7)
  1. AROPAX [Suspect]
     Active Substance: PAROXETINE HYDROCHLORIDE
     Indication: CEREBRAL HAEMANGIOMA
     Dosage: 1 DF, QD (20 MG), AT NIGHT
     Route: 048
     Dates: start: 20160820
  2. NIMOTOP [Concomitant]
     Active Substance: NIMODIPINE
     Indication: TACHYCARDIA
  3. AROPAX [Suspect]
     Active Substance: PAROXETINE HYDROCHLORIDE
     Indication: SLEEP DISORDER
     Dosage: 0.5 DF, QD (20 MG), AT NIGHT
     Route: 048
     Dates: start: 20160827, end: 20160907
  4. TRILEPTAL [Suspect]
     Active Substance: OXCARBAZEPINE
     Indication: HEADACHE
     Dosage: 7 ML, TID
     Route: 048
     Dates: start: 20160820
  5. NIMOTOP [Concomitant]
     Active Substance: NIMODIPINE
     Indication: ARRHYTHMIA
     Dosage: 0.5 DF, QD
     Route: 048
     Dates: start: 201601, end: 201601
  6. TRILEPTAL [Suspect]
     Active Substance: OXCARBAZEPINE
     Indication: CEREBRAL HAEMANGIOMA
     Dosage: 21 ML (60 MG)
     Route: 065
  7. AROPAX [Suspect]
     Active Substance: PAROXETINE HYDROCHLORIDE
     Indication: FEELING OF RELAXATION

REACTIONS (13)
  - Vomiting [Recovered/Resolved]
  - Drug prescribing error [Recovered/Resolved]
  - Headache [Unknown]
  - Inflammation [Unknown]
  - Tachycardia [Unknown]
  - Somnolence [Unknown]
  - Epistaxis [Unknown]
  - Dizziness [Recovered/Resolved]
  - Fatigue [Recovered/Resolved]
  - Product use issue [Recovered/Resolved]
  - Wrong technique in product usage process [Recovered/Resolved]
  - Cerebral haemangioma [Unknown]
  - Somnolence [Recovered/Resolved]

NARRATIVE: CASE EVENT DATE: 20160820
